FAERS Safety Report 7478324-3 (Version None)
Quarter: 2011Q2

REPORT INFORMATION
  Report Type: 
  Country: None (occurrence: None)
  Receive Date: 20110513
  Receipt Date: 20110506
  Transmission Date: 20111010
  Serious: Yes (Other)
  Sender: FDA-Public Use
  Company Number: PHHY2011US38995

PATIENT
  Age: 67 Year
  Sex: Female

DRUGS (3)
  1. INHALATION [Concomitant]
  2. CHOLESTEROL MEDICATION [Concomitant]
  3. ZADITOR [Suspect]
     Indication: GLAUCOMA
     Dosage: 2 TIMES IN 5 DAYS, 1 DROP IN EACH EYE

REACTIONS (1)
  - INTRAOCULAR PRESSURE INCREASED [None]
